FAERS Safety Report 11118533 (Version 2)
Quarter: 2015Q3

REPORT INFORMATION
  Report Type: Spontaneous
  Country: FR (occurrence: FR)
  Receive Date: 20150518
  Receipt Date: 20150818
  Transmission Date: 20151125
  Serious: Yes (Other)
  Sender: FDA-Public Use
  Company Number: FR-BIOGENIDEC-2015BI061390

PATIENT
  Age: 56 Year
  Sex: Male
  Weight: 93 kg

DRUGS (3)
  1. TRANSIPEG [Concomitant]
     Active Substance: POLYETHYLENE GLYCOL 3350
  2. KETOPROFEN. [Concomitant]
     Active Substance: KETOPROFEN
  3. FAMPYRA [Suspect]
     Active Substance: DALFAMPRIDINE
     Indication: GAIT DISTURBANCE
     Route: 048

REACTIONS (4)
  - Decreased appetite [Unknown]
  - Abdominal pain [Recovered/Resolved]
  - Colitis ulcerative [Unknown]
  - Pelvic pain [Recovered/Resolved]
